FAERS Safety Report 9862774 (Version 1)
Quarter: 2014Q1

REPORT INFORMATION
  Report Type: Spontaneous
  Country: KR (occurrence: KR)
  Receive Date: 20140203
  Receipt Date: 20140203
  Transmission Date: 20141002
  Serious: Yes (Death, Congenital Anomaly, Other)
  Sender: FDA-Public Use
  Company Number: PHHY2014KR011550

PATIENT
  Sex: 0
  Weight: 2.23 kg

DRUGS (2)
  1. CICLOSPORIN [Suspect]
     Dosage: 5 MG/KG, UNK
     Route: 064
  2. PREDNISOLONE [Suspect]
     Route: 064

REACTIONS (4)
  - Stillbirth [Fatal]
  - Anencephaly [Unknown]
  - Low birth weight baby [Unknown]
  - Foetal exposure during pregnancy [Unknown]
